FAERS Safety Report 8447474-7 (Version None)
Quarter: 2012Q2

REPORT INFORMATION
  Report Type: 
  Country: None (occurrence: None)
  Receive Date: 20120612
  Receipt Date: 20120529
  Transmission Date: 20120825
  Serious: Yes (Hospitalization)
  Sender: FDA-Public Use
  Company Number: JP-2012-14891

PATIENT
  Age: 87 Year
  Sex: Male

DRUGS (10)
  1. LASIX [Concomitant]
  2. CARVEDILOL [Concomitant]
  3. DIART (AZOSEMIDE) [Concomitant]
  4. LANIRAPID (METILDIGOXIN) [Concomitant]
  5. ENSURE (NUTRIENTS NOS) [Concomitant]
  6. TAMSULOSIN HCL [Concomitant]
  7. SAMSCA [Suspect]
     Indication: CARDIAC FAILURE CONGESTIVE
     Dosage: 7.5 MG MILLIGRAM(S), QD, ORAL
     Route: 048
     Dates: start: 20120326, end: 20120402
  8. SELARA (EPLERENONE) [Concomitant]
  9. VERAPAMIL HYDROCHLORIDE [Concomitant]
  10. PIMOBENDAN (PIMOBENDAN) [Concomitant]

REACTIONS (5)
  - GASTROINTESTINAL HAEMORRHAGE [None]
  - RENAL IMPAIRMENT [None]
  - HYPERNATRAEMIA [None]
  - BLOOD UREA INCREASED [None]
  - DEHYDRATION [None]
